FAERS Safety Report 7841652-3 (Version None)
Quarter: 2011Q4

REPORT INFORMATION
  Report Type: 
  Country: None (occurrence: None)
  Receive Date: 20111024
  Receipt Date: 20111024
  Transmission Date: 20120403
  Serious: Yes (Hospitalization)
  Sender: FDA-Public Use
  Company Number: None

PATIENT
  Sex: Male
  Weight: 102.0593 kg

DRUGS (1)
  1. BENAZEPRIL HYDROCHLORIDE [Suspect]
     Indication: HYPERTENSION
     Dosage: 40 MG 1 DAY SEVERAL YEARS
     Dates: end: 20110901

REACTIONS (4)
  - SKIN DISCOLOURATION [None]
  - CEREBROVASCULAR ACCIDENT [None]
  - SKIN HAEMORRHAGE [None]
  - COUGH [None]
